FAERS Safety Report 15245816 (Version 2)
Quarter: 2019Q1

REPORT INFORMATION
  Report Type: Report from Study
  Country: ZA (occurrence: ZA)
  Receive Date: 20180806
  Receipt Date: 20190201
  Transmission Date: 20190417
  Serious: Yes (Death)
  Sender: FDA-Public Use
  Company Number: PHHY2018ZA060093

PATIENT
  Sex: Male

DRUGS (1)
  1. ZOMEVEK [Suspect]
     Active Substance: VALSARTAN
     Indication: HYPERTENSION
     Dosage: 160 MG, UNK
     Route: 048
     Dates: start: 201808, end: 201812

REACTIONS (2)
  - Aphasia [Not Recovered/Not Resolved]
  - Cerebrovascular accident [Fatal]
